FAERS Safety Report 9019148 (Version 1)
Quarter: 2013Q1

REPORT INFORMATION
  Report Type: Spontaneous
  Country: US (occurrence: US)
  Receive Date: 20130118
  Receipt Date: 20130118
  Transmission Date: 20140127
  Serious: Yes (Death)
  Sender: FDA-Public Use
  Company Number: US-ABBOTT-13P-163-1037154-00

PATIENT
  Age: 58 Year
  Sex: Female

DRUGS (8)
  1. ACETAMINOPHEN\HYDROCODONE [Suspect]
     Indication: PRODUCT USED FOR UNKNOWN INDICATION
  2. ACETAMINOPHEN\HYDROCODONE [Suspect]
  3. FENTYL [Suspect]
     Indication: PRODUCT USED FOR UNKNOWN INDICATION
  4. FENTYL [Suspect]
  5. PROMETHAZINE [Suspect]
     Indication: PRODUCT USED FOR UNKNOWN INDICATION
  6. PROMETHAZINE [Suspect]
  7. LAXATIVE [Suspect]
     Indication: PRODUCT USED FOR UNKNOWN INDICATION
  8. LAXATIVE [Suspect]

REACTIONS (2)
  - Intentional drug misuse [Fatal]
  - Drug abuse [None]
